FAERS Safety Report 12796437 (Version 1)
Quarter: 2016Q3

REPORT INFORMATION
  Report Type: Spontaneous
  Country: IT (occurrence: IT)
  Receive Date: 20160929
  Receipt Date: 20160929
  Transmission Date: 20161109
  Serious: Yes (Other)
  Sender: FDA-Public Use
  Company Number: IT-G+W LABS-GW2016IT000134

PATIENT

DRUGS (1)
  1. METRONIDAZOLE. [Suspect]
     Active Substance: METRONIDAZOLE
     Indication: METABOLIC DISORDER
     Dosage: 500 MG, QD, 1 WEEK/MONTH
     Route: 065

REACTIONS (1)
  - Acute motor-sensory axonal neuropathy [Recovered/Resolved]
